FAERS Safety Report 18599695 (Version 1)
Quarter: 2020Q4

REPORT INFORMATION
  Report Type: Spontaneous
  Country: US (occurrence: US)
  Receive Date: 20201209
  Receipt Date: 20201209
  Transmission Date: 20210114
  Serious: Yes (Life-Threatening, Other)
  Sender: FDA-Public Use
  Company Number: None

PATIENT
  Age: 44 Year
  Sex: Male
  Weight: 130.5 kg

DRUGS (3)
  1. RISPERDAL [Suspect]
     Active Substance: RISPERIDONE
     Indication: IRRITABILITY
     Dosage: ?          QUANTITY:200 TABLET(S);?
     Route: 048
     Dates: start: 20200211, end: 20200520
  2. RISPERDAL CONSTA [Suspect]
     Active Substance: RISPERIDONE
  3. RISPERDAL M-TAB [Suspect]
     Active Substance: RISPERIDONE

REACTIONS (24)
  - Disturbance in attention [None]
  - Speech disorder [None]
  - Pruritus [None]
  - Dysphagia [None]
  - Tic [None]
  - Agitation [None]
  - Vision blurred [None]
  - Urine output increased [None]
  - Reduced facial expression [None]
  - Musculoskeletal discomfort [None]
  - Rash [None]
  - Dyskinesia [None]
  - Anxiety [None]
  - Balance disorder [None]
  - Musculoskeletal stiffness [None]
  - Eye movement disorder [None]
  - Memory impairment [None]
  - Restlessness [None]
  - Muscular weakness [None]
  - Insomnia [None]
  - Gynaecomastia [None]
  - Visual impairment [None]
  - Facial spasm [None]
  - Tremor [None]

NARRATIVE: CASE EVENT DATE: 20201209
